FAERS Safety Report 6805234-4 (Version None)
Quarter: 2010Q2

REPORT INFORMATION
  Report Type: 
  Country: None (occurrence: None)
  Receive Date: 20100628
  Receipt Date: 20071009
  Transmission Date: 20101027
  Serious: Yes (Other)
  Sender: FDA-Public Use
  Company Number: US-PFIZER INC-2007085698

PATIENT
  Age: 20 Year
  Sex: Male

DRUGS (5)
  1. GEODON [Suspect]
     Indication: OBSESSIVE-COMPULSIVE DISORDER
  2. GEODON [Suspect]
     Indication: PSYCHOTIC DISORDER
  3. PROZAC [Suspect]
  4. KEPPRA [Suspect]
  5. DEPAKOTE [Concomitant]

REACTIONS (2)
  - DYSTONIA [None]
  - PLATELET COUNT DECREASED [None]
